FAERS Safety Report 5755194-2 (Version None)
Quarter: 2008Q2

REPORT INFORMATION
  Report Type: 
  Country: None (occurrence: None)
  Receive Date: 20080602
  Receipt Date: 20080526
  Transmission Date: 20081010
  Serious: Yes (Hospitalization)
  Sender: FDA-Public Use
  Company Number: FR-BAYER-200818948GPV

PATIENT
  Age: 35 Year
  Sex: Female

DRUGS (12)
  1. IZILOX [Suspect]
     Indication: DRUG USE FOR UNKNOWN INDICATION
     Dosage: TOTAL DAILY DOSE: 400 MG  UNIT DOSE: 400 MG
     Route: 048
     Dates: start: 20071023, end: 20080201
  2. RIFADIN [Suspect]
     Indication: DRUG USE FOR UNKNOWN INDICATION
     Route: 048
     Dates: start: 20071011, end: 20080208
  3. PLAQUENIL [Concomitant]
     Indication: DISSEMINATED TUBERCULOSIS
     Route: 048
     Dates: start: 20071018, end: 20080208
  4. PLAQUENIL [Concomitant]
     Route: 048
     Dates: start: 20080221
  5. CORTANCYL [Concomitant]
     Indication: DRUG USE FOR UNKNOWN INDICATION
     Route: 065
     Dates: start: 20070101
  6. CYCLADOL [Concomitant]
     Indication: DRUG USE FOR UNKNOWN INDICATION
     Route: 065
  7. ISONIAZID [Concomitant]
     Indication: DISSEMINATED TUBERCULOSIS
     Route: 065
     Dates: start: 20070301, end: 20071018
  8. MYAMBUTOL [Concomitant]
     Indication: DISSEMINATED TUBERCULOSIS
     Route: 048
     Dates: start: 20070301, end: 20080101
  9. PIRILENE [Concomitant]
     Indication: DISSEMINATED TUBERCULOSIS
     Route: 065
     Dates: start: 20070301, end: 20070101
  10. AMIKACIN [Concomitant]
     Indication: DISSEMINATED TUBERCULOSIS
     Route: 042
     Dates: start: 20071008, end: 20071101
  11. RIFINAH [Concomitant]
     Indication: DISSEMINATED TUBERCULOSIS
     Route: 065
  12. RIMIFON [Concomitant]
     Indication: DISSEMINATED TUBERCULOSIS
     Route: 048
     Dates: start: 20071008, end: 20071019

REACTIONS (4)
  - ABDOMINAL PAIN UPPER [None]
  - CYTOLYTIC HEPATITIS [None]
  - NAUSEA [None]
  - OCULAR ICTERUS [None]
